FAERS Safety Report 17198410 (Version 1)
Quarter: 2019Q4

REPORT INFORMATION
  Report Type: Report from Study
  Country: NO (occurrence: NO)
  Receive Date: 20191225
  Receipt Date: 20191225
  Transmission Date: 20200122
  Serious: Yes (Other)
  Sender: FDA-Public Use
  Company Number: NO-UCBSA-2018029117

PATIENT

DRUGS (2)
  1. CERTOLIZUMAB PEGOL [Suspect]
     Active Substance: CERTOLIZUMAB PEGOL
     Dosage: UNKNOWN DOSE
  2. CERTOLIZUMAB PEGOL [Suspect]
     Active Substance: CERTOLIZUMAB PEGOL
     Indication: PRODUCT USED FOR UNKNOWN INDICATION
     Dosage: LOADING DOSE OF 400 MG AT WEEKS 0, 2 AND 4

REACTIONS (5)
  - Drug ineffective [Unknown]
  - Dermatitis allergic [Unknown]
  - Infection [Unknown]
  - Adverse event [Unknown]
  - Injection site reaction [Unknown]
